FAERS Safety Report 7660413-1 (Version None)
Quarter: 2011Q3

REPORT INFORMATION
  Report Type: 
  Country: None (occurrence: None)
  Receive Date: 20110805
  Receipt Date: 20110722
  Transmission Date: 20111222
  Serious: Yes (Other)
  Sender: FDA-Public Use
  Company Number: US-WATSON-2011-11423

PATIENT
  Age: 68 Year
  Sex: Female
  Weight: 52.6 kg

DRUGS (2)
  1. DILANTIN [Suspect]
     Indication: CONVULSION
     Dosage: 100 MG TWO TIMES A DAY
     Route: 048
     Dates: start: 19480101
  2. PRIMIDONE [Suspect]
     Indication: CONVULSION
     Dosage: 250 MG TWO TIMES A DAY
     Route: 048
     Dates: start: 19560101

REACTIONS (2)
  - BLOOD THYROID STIMULATING HORMONE INCREASED [None]
  - EXTRANODAL MARGINAL ZONE B-CELL LYMPHOMA (MALT TYPE) [None]
